FAERS Safety Report 21927252 (Version 1)
Quarter: 2023Q1

REPORT INFORMATION
  Report Type: Spontaneous
  Country: GB (occurrence: GB)
  Receive Date: 20230130
  Receipt Date: 20230130
  Transmission Date: 20230417
  Serious: Yes (Other)
  Sender: FDA-Public Use
  Company Number: None

PATIENT
  Age: 65 Year
  Sex: Male
  Weight: 57 kg

DRUGS (12)
  1. CANDESARTAN [Suspect]
     Active Substance: CANDESARTAN
     Indication: Product used for unknown indication
     Dosage: 4 MILLIGRAM, QD
     Route: 065
     Dates: start: 20230115, end: 20230118
  2. AMOXICILLIN [Concomitant]
     Active Substance: AMOXICILLIN
     Dosage: 1 DOSAGE FORM, TID
     Route: 065
     Dates: start: 20230106, end: 20230113
  3. BACLOFEN [Concomitant]
     Active Substance: BACLOFEN
     Dosage: 1 DOSAGE FORM(USE FOR UPTITRATION OF REGULAR DOSE (NEVER MORE)
     Route: 065
     Dates: start: 20220406, end: 20221207
  4. CITALOPRAM [Concomitant]
     Active Substance: CITALOPRAM HYDROBROMIDE
     Dosage: 1 DOSAGE FORM, AM(EVERY MORNING)
     Route: 065
     Dates: start: 20220406, end: 20221207
  5. CLOPIDOGREL [Concomitant]
     Active Substance: CLOPIDOGREL BISULFATE
     Dosage: 1 DOSAGE FORM, QD
     Route: 065
     Dates: start: 20220406
  6. GABAPENTIN [Concomitant]
     Active Substance: GABAPENTIN
     Dosage: 2 DOSAGE FORM, TID
     Route: 065
     Dates: start: 20220406
  7. LANSOPRAZOLE [Concomitant]
     Active Substance: LANSOPRAZOLE
     Dosage: UNK(TAKE ONE OR TWO)
     Route: 065
     Dates: start: 20220406
  8. ACETAMINOPHEN [Concomitant]
     Active Substance: ACETAMINOPHEN
     Dosage: 2 DOSAGE FORM, QID(WHEN REQUIRED)
     Route: 065
     Dates: start: 20220406
  9. SIMVASTATIN [Concomitant]
     Active Substance: SIMVASTATIN
     Dosage: 1 DOSAGE FORM, QD(AT NIGHT)
     Route: 065
     Dates: start: 20220406, end: 20221207
  10. OLODATEROL HYDROCHLORIDE\TIOTROPIUM BROMIDE MONOHYDRATE [Concomitant]
     Active Substance: OLODATEROL HYDROCHLORIDE\TIOTROPIUM BROMIDE MONOHYDRATE
     Dosage: 2 DOSAGE FORM, QD
     Route: 055
     Dates: start: 20220406, end: 20221207
  11. TOPIRAMATE [Concomitant]
     Active Substance: TOPIRAMATE
     Dosage: 2 DOSAGE FORM, BID
     Route: 065
     Dates: start: 20220909, end: 20221207
  12. TRAMADOL HYDROCHLORIDE [Concomitant]
     Active Substance: TRAMADOL HYDROCHLORIDE
     Dosage: 1 DOSAGE FORM, BID
     Route: 065
     Dates: start: 20220406

REACTIONS (1)
  - Palpitations [Unknown]
